FAERS Safety Report 14176474 (Version 1)
Quarter: 2017Q4

REPORT INFORMATION
  Report Type: Report from Study
  Country: None (occurrence: US)
  Receive Date: 20171109
  Receipt Date: 20171109
  Transmission Date: 20180321
  Serious: Yes (Other)
  Sender: FDA-Public Use
  Company Number: US-ABBVIE-17K-163-2152957-00

PATIENT
  Sex: Female

DRUGS (1)
  1. HUMIRA [Suspect]
     Active Substance: ADALIMUMAB
     Indication: PRODUCT USED FOR UNKNOWN INDICATION
     Route: 058

REACTIONS (7)
  - Fatigue [Unknown]
  - Urinary tract infection [Unknown]
  - Injection site pruritus [Unknown]
  - Raynaud^s phenomenon [Unknown]
  - Injection site papule [Unknown]
  - Systemic lupus erythematosus [Unknown]
  - Injection site pain [Unknown]
